FAERS Safety Report 6188838-4 (Version None)
Quarter: 2009Q2

REPORT INFORMATION
  Report Type: 
  Country: None (occurrence: None)
  Receive Date: 20090513
  Receipt Date: 20090504
  Transmission Date: 20091009
  Serious: Yes (Hospitalization, Other)
  Sender: FDA-Public Use
  Company Number: BR-TYCO HEALTHCARE/MALLINCKRODT-T200900989

PATIENT
  Age: 52 Year
  Sex: Female
  Weight: 60 kg

DRUGS (8)
  1. OPTIRAY 300 [Suspect]
     Indication: SCAN WITH CONTRAST
     Dosage: 240 ML, BOLUS
     Route: 042
     Dates: start: 20090327, end: 20090327
  2. CANGRELOR VS PLACEBO [Suspect]
     Indication: PERCUTANEOUS CORONARY INTERVENTION
     Dosage: 4.6 ML, BOLUS
     Route: 042
     Dates: start: 20090327, end: 20090327
  3. CANGRELOR VS PLACEBO [Suspect]
     Dosage: 74.4 ML, UNK
     Route: 042
     Dates: start: 20090327, end: 20090327
  4. CLOPIDOGREL [Suspect]
     Indication: PERCUTANEOUS CORONARY INTERVENTION
     Dosage: 4 CAPSULES, SINGLE POST PROCEDURE
     Route: 048
     Dates: start: 20090327, end: 20090327
  5. CLOPIDOGREL [Suspect]
     Dosage: 4 CAPSULES, SINGLE POST INFUSION
     Route: 048
     Dates: start: 20090327, end: 20090327
  6. ASPIRIN [Concomitant]
     Dosage: UNK
     Dates: start: 20090327, end: 20090403
  7. METOPROLOL [Concomitant]
     Dosage: UNK
     Dates: start: 20090328, end: 20090403
  8. ENOXAPARIN SODIUM [Concomitant]
     Dosage: UNK
     Dates: start: 20090328, end: 20090403

REACTIONS (3)
  - ANAEMIA [None]
  - CONDITION AGGRAVATED [None]
  - NEPHROPATHY TOXIC [None]
